FAERS Safety Report 9734164 (Version 1)
Quarter: 2013Q4

REPORT INFORMATION
  Report Type: Spontaneous
  Country: US (occurrence: US)
  Receive Date: 20131205
  Receipt Date: 20131205
  Transmission Date: 20140711
  Serious: Yes (Hospitalization)
  Sender: FDA-Public Use
  Company Number: PHHY2013US136377

PATIENT
  Sex: 0

DRUGS (1)
  1. SULFAMETHOXAZOLE+TRIMETHOPRIM [Suspect]
     Indication: PROSTATITIS

REACTIONS (23)
  - Drug reaction with eosinophilia and systemic symptoms [Recovering/Resolving]
  - Gastritis erosive [Recovering/Resolving]
  - Jaundice [Recovering/Resolving]
  - Lymphadenopathy [Recovering/Resolving]
  - Rash generalised [Recovering/Resolving]
  - Pyrexia [Recovering/Resolving]
  - Chills [Recovering/Resolving]
  - Abdominal pain [Recovering/Resolving]
  - Nausea [Recovering/Resolving]
  - Vomiting [Recovering/Resolving]
  - Diarrhoea [Recovering/Resolving]
  - Chromaturia [Recovering/Resolving]
  - Rash erythematous [Recovering/Resolving]
  - Rash pruritic [Recovering/Resolving]
  - Pain [Recovering/Resolving]
  - Rash maculo-papular [Recovering/Resolving]
  - Exfoliative rash [Recovering/Resolving]
  - Dermatitis exfoliative [Recovering/Resolving]
  - Eosinophilia [Recovering/Resolving]
  - Cutaneous vasculitis [Recovering/Resolving]
  - Hepatomegaly [Recovering/Resolving]
  - Cholecystitis [Recovering/Resolving]
  - Hepatitis [Recovering/Resolving]
